FAERS Safety Report 21497939 (Version 2)
Quarter: 2022Q4

REPORT INFORMATION
  Report Type: Report from Study
  Country: BR (occurrence: None)
  Receive Date: 20221024
  Receipt Date: 20221215
  Transmission Date: 20230112
  Serious: Yes (Other)
  Sender: FDA-Public Use
  Company Number: BR-Merck Healthcare KGaA-9359519

PATIENT
  Sex: Female

DRUGS (3)
  1. INTERFERON BETA-1A [Suspect]
     Active Substance: INTERFERON BETA-1A
     Indication: Multiple sclerosis
     Route: 058
     Dates: start: 20190830
  2. REBIF [Suspect]
     Active Substance: INTERFERON BETA-1A
     Indication: Multiple sclerosis
     Dates: start: 20160208, end: 20171127
  3. REBIF [Suspect]
     Active Substance: INTERFERON BETA-1A
     Dates: start: 20180903, end: 20190828

REACTIONS (1)
  - Spinal disorder [Not Recovered/Not Resolved]
